FAERS Safety Report 25665164 (Version 1)
Quarter: 2025Q3

REPORT INFORMATION
  Report Type: Spontaneous
  Country: US (occurrence: None)
  Receive Date: 20250809
  Receipt Date: 20250809
  Transmission Date: 20251021
  Serious: Yes (Death)
  Sender: FDA-CTU
  Company Number: None

PATIENT
  Age: 28 Year
  Sex: Male

DRUGS (1)
  1. NEULASTA [Suspect]
     Active Substance: PEGFILGRASTIM
     Indication: Malignant connective tissue neoplasm
     Route: 058
     Dates: start: 20201013

REACTIONS (1)
  - Death [None]

NARRATIVE: CASE EVENT DATE: 20210226
